FAERS Safety Report 8220157-4 (Version None)
Quarter: 2012Q1

REPORT INFORMATION
  Report Type: 
  Country: None (occurrence: None)
  Receive Date: 20120320
  Receipt Date: 20120308
  Transmission Date: 20120608
  Serious: Yes (Hospitalization)
  Sender: FDA-Public Use
  Company Number: US-BAYER-2011-022149

PATIENT
  Age: 34 Year
  Sex: Female
  Weight: 66 kg

DRUGS (3)
  1. YASMIN [Suspect]
     Indication: CONTRACEPTION
     Dosage: UNK
     Dates: start: 20020101, end: 20040922
  2. LEVAQUIN [Concomitant]
     Indication: WHITE BLOOD CELLS URINE POSITIVE
     Dosage: 500 MG, UNK
  3. SYNTHROID [Concomitant]
     Dosage: UNK
     Dates: start: 20101101

REACTIONS (4)
  - DEPRESSION [None]
  - CHEST PAIN [None]
  - PULMONARY EMBOLISM [None]
  - INJURY [None]
